FAERS Safety Report 5523367-X (Version None)
Quarter: 2007Q4

REPORT INFORMATION
  Report Type: 
  Country: None (occurrence: None)
  Receive Date: 20071121
  Receipt Date: 20071119
  Transmission Date: 20080405
  Serious: Yes (Other)
  Sender: FDA-Public Use
  Company Number: B0495955A

PATIENT
  Age: 17 Year
  Sex: Female

DRUGS (6)
  1. PAXIL [Suspect]
     Indication: OBSESSIVE-COMPULSIVE DISORDER
     Dosage: 10MG PER DAY
     Route: 048
     Dates: start: 20050818
  2. PAXIL [Suspect]
     Indication: DEPRESSION
     Dosage: 20MG PER DAY
     Route: 048
     Dates: end: 20070413
  3. PAXIL [Suspect]
     Dosage: 30MG PER DAY
     Route: 048
     Dates: start: 20070828, end: 20071109
  4. LULLAN [Concomitant]
     Route: 048
     Dates: start: 20050818, end: 20070413
  5. MYSLEE [Concomitant]
     Route: 048
     Dates: start: 20050818, end: 20070413
  6. SOLANAX [Concomitant]
     Route: 048
     Dates: start: 20070828, end: 20071109

REACTIONS (4)
  - ILL-DEFINED DISORDER [None]
  - OVERDOSE [None]
  - SELF INJURIOUS BEHAVIOUR [None]
  - SELF MUTILATION [None]
